FAERS Safety Report 9862399 (Version 3)
Quarter: 2014Q1

REPORT INFORMATION
  Report Type: Spontaneous
  Country: JP (occurrence: JP)
  Receive Date: 20140203
  Receipt Date: 20140221
  Transmission Date: 20141002
  Serious: Yes (Hospitalization)
  Sender: FDA-Public Use
  Company Number: JP-ABBVIE-12P-087-1027123-00

PATIENT
  Age: 50 Year
  Sex: Male
  Weight: 58.6 kg

DRUGS (6)
  1. HUMIRA [Suspect]
     Indication: RHEUMATOID ARTHRITIS
     Route: 058
     Dates: start: 20120117, end: 20120131
  2. METHOTREXATE [Concomitant]
     Indication: RHEUMATOID ARTHRITIS
     Dates: start: 20110517, end: 20110614
  3. METHOTREXATE [Concomitant]
     Dates: start: 20110614, end: 20110809
  4. METHOTREXATE [Concomitant]
     Dates: start: 20110809, end: 20120214
  5. FOLIC ACID [Concomitant]
     Indication: RHEUMATOID ARTHRITIS
     Dates: start: 20110614, end: 20120214
  6. MIZORIBINE [Concomitant]
     Indication: RHEUMATOID ARTHRITIS
     Dates: start: 20111115, end: 20120214

REACTIONS (3)
  - Antisynthetase syndrome [Recovering/Resolving]
  - Intestinal obstruction [Recovering/Resolving]
  - Interstitial lung disease [Recovering/Resolving]
